FAERS Safety Report 12999664 (Version 1)
Quarter: 2016Q4

REPORT INFORMATION
  Report Type: Spontaneous
  Country: AU (occurrence: AU)
  Receive Date: 20161205
  Receipt Date: 20161205
  Transmission Date: 20170207
  Serious: Yes (Other)
  Sender: FDA-Public Use
  Company Number: AU-SA-2016SA220605

PATIENT
  Age: 59 Year
  Sex: Male

DRUGS (1)
  1. DOCETAXEL. [Suspect]
     Active Substance: DOCETAXEL
     Indication: PROSTATE CANCER
     Route: 065

REACTIONS (8)
  - Optic neuropathy [Unknown]
  - Colour vision tests abnormal [Unknown]
  - Visual impairment [Unknown]
  - Visual field defect [Unknown]
  - Papilloedema [Unknown]
  - Toxic optic neuropathy [Recovering/Resolving]
  - Vision blurred [Unknown]
  - Optic disc disorder [Unknown]
